FAERS Safety Report 9217306 (Version 2)
Quarter: 2013Q2

REPORT INFORMATION
  Report Type: Spontaneous
  Country: US (occurrence: US)
  Receive Date: 20130408
  Receipt Date: 20130416
  Transmission Date: 20140414
  Serious: Yes (Other)
  Sender: FDA-Public Use
  Company Number: US-ROCHE-1209344

PATIENT
  Age: 83 Year
  Sex: Male

DRUGS (7)
  1. ACTILYSE [Suspect]
     Indication: PULMONARY EMBOLISM
     Route: 013
  2. HEPARIN [Suspect]
     Indication: PULMONARY EMBOLISM
     Route: 065
  3. HEPARIN [Suspect]
     Indication: ACUTE CORONARY SYNDROME
  4. ASPIRIN [Suspect]
     Indication: PULMONARY EMBOLISM
     Route: 065
  5. ASPIRIN [Suspect]
     Indication: ACUTE CORONARY SYNDROME
  6. CLOPIDOGREL [Suspect]
     Indication: PULMONARY EMBOLISM
     Route: 065
  7. CLOPIDOGREL [Suspect]
     Indication: ACUTE CORONARY SYNDROME

REACTIONS (4)
  - Haemorrhage intracranial [Recovered/Resolved]
  - Catheter site haematoma [Unknown]
  - Confusional state [Unknown]
  - Amnesia [Unknown]
